FAERS Safety Report 7941219-2 (Version None)
Quarter: 2011Q4

REPORT INFORMATION
  Report Type: 
  Country: None (occurrence: None)
  Receive Date: 20111128
  Receipt Date: 20111117
  Transmission Date: 20120403
  Serious: Yes (Death)
  Sender: FDA-Public Use
  Company Number: MX-SANOFI-AVENTIS-2011SA076064

PATIENT
  Age: 60 Year
  Sex: Female

DRUGS (5)
  1. ACARBOSE [Suspect]
     Indication: TYPE 2 DIABETES MELLITUS
     Route: 048
     Dates: start: 20100301, end: 20100625
  2. METOPROLOL TARTRATE [Concomitant]
     Route: 048
     Dates: end: 20100625
  3. NIFEDIPINE [Concomitant]
     Route: 048
     Dates: end: 20100625
  4. LANTUS [Suspect]
     Indication: TYPE 2 DIABETES MELLITUS
     Dosage: DOSE: 10 IU IN THE MORNING AND 5 IU IN THE NIGHT.
     Route: 058
     Dates: start: 20100301, end: 20100625
  5. ENALAPRIL MALEATE [Concomitant]
     Route: 048
     Dates: end: 20100625

REACTIONS (3)
  - DRUG ADMINISTRATION ERROR [None]
  - RENAL FAILURE CHRONIC [None]
  - ALTERED STATE OF CONSCIOUSNESS [None]
